FAERS Safety Report 16951121 (Version 1)
Quarter: 2019Q4

REPORT INFORMATION
  Report Type: Spontaneous
  Country: US (occurrence: US)
  Receive Date: 20190903
  Receipt Date: 20190903
  Transmission Date: 20200122
  Serious: Yes (Hospitalization)
  Sender: FDA-Public Use
  Company Number: None

PATIENT
  Age: 64 Year
  Sex: Female
  Weight: 73.2 kg

DRUGS (11)
  1. ALPRAZOLAM. [Concomitant]
     Active Substance: ALPRAZOLAM
  2. LANSOPRAZOLE. [Concomitant]
     Active Substance: LANSOPRAZOLE
  3. APIXABAN [Suspect]
     Active Substance: APIXABAN
     Indication: DEEP VEIN THROMBOSIS
     Dosage: ?          OTHER DOSE:2.5 OR 5.0 MG ;?
     Route: 048
     Dates: start: 20181227, end: 20190901
  4. ONDANSETRON [Concomitant]
     Active Substance: ONDANSETRON
  5. GABAPENTIN. [Concomitant]
     Active Substance: GABAPENTIN
  6. LEVETIRACETAM. [Concomitant]
     Active Substance: LEVETIRACETAM
  7. ROSUVASTATIN. [Concomitant]
     Active Substance: ROSUVASTATIN
  8. LUBIPROSTONE [Concomitant]
     Active Substance: LUBIPROSTONE
  9. SERTRALINE [Concomitant]
     Active Substance: SERTRALINE HYDROCHLORIDE
  10. ASPIRIN. [Concomitant]
     Active Substance: ASPIRIN
  11. FLUTICASONE. [Concomitant]
     Active Substance: FLUTICASONE

REACTIONS (5)
  - Proteinuria [None]
  - Pancreatitis acute [None]
  - Cholecystitis [None]
  - Gallbladder enlargement [None]
  - Haematuria [None]

NARRATIVE: CASE EVENT DATE: 20190901
